FAERS Safety Report 9109110 (Version 1)
Quarter: 2013Q1

REPORT INFORMATION
  Report Type: Spontaneous
  Country: US (occurrence: US)
  Receive Date: 20130222
  Receipt Date: 20130222
  Transmission Date: 20140127
  Serious: Yes (Hospitalization)
  Sender: FDA-Public Use
  Company Number: US-009507513-1302USA005133

PATIENT
  Sex: Male
  Weight: 76.19 kg

DRUGS (7)
  1. VICTRELIS [Suspect]
     Indication: HEPATITIS C
     Dosage: 200 MG, QID
     Route: 048
     Dates: start: 201207
  2. RIBAVIRIN [Suspect]
  3. PEGASYS [Suspect]
     Dosage: 180 MICROGRAMS/M
  4. CEFAZOLIN [Concomitant]
  5. NADOLOL [Concomitant]
  6. PANTOPRAZOLE [Concomitant]
  7. FUROSEMIDE [Concomitant]

REACTIONS (6)
  - Sepsis [Unknown]
  - Platelet count decreased [Unknown]
  - Joint swelling [Unknown]
  - Local swelling [Unknown]
  - Red blood cell count decreased [Unknown]
  - White blood cell count decreased [Unknown]
